FAERS Safety Report 8265447-4 (Version None)
Quarter: 2012Q2

REPORT INFORMATION
  Report Type: 
  Country: None (occurrence: None)
  Receive Date: 20120406
  Receipt Date: 20120402
  Transmission Date: 20120825
  Serious: Yes (Other)
  Sender: FDA-Public Use
  Company Number: US-PFIZER INC-2012083188

PATIENT
  Sex: Female
  Weight: 83.9 kg

DRUGS (6)
  1. DIGOXIN [Concomitant]
     Indication: CARDIAC DISORDER
     Dosage: 125 MG, DAILY
  2. REVATIO [Suspect]
     Indication: PULMONARY HYPERTENSION
     Dosage: 20 MG, 3X/DAY
     Dates: start: 20120316, end: 20120327
  3. SIMVASTATIN [Concomitant]
     Dosage: 10 MG, DAILY
  4. DILTIAZEM [Concomitant]
     Dosage: 180 MG, 2X/DAY
  5. WARFARIN [Concomitant]
     Indication: ANTICOAGULANT THERAPY
  6. WARFARIN [Concomitant]
     Indication: ATRIAL FIBRILLATION
     Dosage: 4 MG, DAILY

REACTIONS (6)
  - OEDEMA PERIPHERAL [None]
  - JOINT SWELLING [None]
  - PAIN [None]
  - COUGH [None]
  - CONDITION AGGRAVATED [None]
  - DYSPNOEA [None]
